FAERS Safety Report 4375364-8 (Version None)
Quarter: 2004Q2

REPORT INFORMATION
  Report Type: 
  Country: None (occurrence: None)
  Receive Date: 20040610
  Receipt Date: 20040526
  Transmission Date: 20050107
  Serious: Yes (Death, Hospitalization)
  Sender: FDA-Public Use
  Company Number: DE-JNJFOC-20040601608

PATIENT
  Sex: Male

DRUGS (9)
  1. REOPRO [Suspect]
     Dosage: 0.125 UG/KG/MIN
  2. REOPRO [Suspect]
     Indication: ACUTE MYOCARDIAL INFARCTION
  3. RETEVASE [Suspect]
     Indication: ACUTE MYOCARDIAL INFARCTION
  4. ASPIRIN [Concomitant]
  5. ASPIRIN [Concomitant]
  6. HEPARIN [Concomitant]
  7. BETA BLOCKER [Concomitant]
  8. CLOPIDOGREL BISULFATE [Concomitant]
  9. NITROGLYCERIN [Concomitant]

REACTIONS (22)
  - ARRHYTHMIA [None]
  - ARTERY DISSECTION [None]
  - CARDIOGENIC SHOCK [None]
  - CHOLESTASIS [None]
  - COLITIS ISCHAEMIC [None]
  - CORONARY ARTERY STENOSIS [None]
  - DIALYSIS [None]
  - DRUG INTERACTION [None]
  - GASTRITIS EROSIVE [None]
  - GASTRITIS HAEMORRHAGIC [None]
  - GENERAL PHYSICAL HEALTH DETERIORATION [None]
  - HAEMOGLOBIN DECREASED [None]
  - LARGE INTESTINAL ULCER HAEMORRHAGE [None]
  - PNEUMONIA [None]
  - PROCEDURAL COMPLICATION [None]
  - PSEUDOMONAS INFECTION [None]
  - PULMONARY HAEMORRHAGE [None]
  - PURULENCE [None]
  - RENAL FAILURE ACUTE [None]
  - SEPTIC SHOCK [None]
  - SHOCK HAEMORRHAGIC [None]
  - TACHYPNOEA [None]
